FAERS Safety Report 16669079 (Version 1)
Quarter: 2019Q3

REPORT INFORMATION
  Report Type: Spontaneous
  Country: FR (occurrence: FR)
  Receive Date: 20190805
  Receipt Date: 20190805
  Transmission Date: 20191004
  Serious: Yes (Life-Threatening, Hospitalization)
  Sender: FDA-Public Use
  Company Number: FR-ASTRAZENECA-2019SF10433

PATIENT
  Age: 49 Year
  Sex: Female
  Weight: 89 kg

DRUGS (4)
  1. IBUPROFEN. [Concomitant]
     Active Substance: IBUPROFEN
     Indication: POISONING DELIBERATE
     Dosage: 1200.0MG ONCE/SINGLE ADMINISTRATION
     Route: 048
     Dates: start: 20190120, end: 20190120
  2. QUETIAPINE. [Suspect]
     Active Substance: QUETIAPINE
     Indication: POISONING DELIBERATE
     Dosage: 3000.0MG ONCE/SINGLE ADMINISTRATION
     Route: 048
     Dates: start: 20190120, end: 20190120
  3. VENLAFAXINE [Suspect]
     Active Substance: VENLAFAXINE HYDROCHLORIDE
     Indication: POISONING DELIBERATE
     Dosage: 900.0MG ONCE/SINGLE ADMINISTRATION
     Route: 048
     Dates: start: 20190120, end: 20190120
  4. PARACETAMOL [Concomitant]
     Active Substance: ACETAMINOPHEN
     Indication: POISONING DELIBERATE
     Dosage: 4.0G ONCE/SINGLE ADMINISTRATION
     Route: 048
     Dates: start: 20190120, end: 20190120

REACTIONS (4)
  - Coma [Recovered/Resolved]
  - Confusional state [Recovered/Resolved]
  - Sinus tachycardia [Recovered/Resolved]
  - Anticholinergic syndrome [Recovered/Resolved]

NARRATIVE: CASE EVENT DATE: 20190120
